FAERS Safety Report 23229598 (Version 2)
Quarter: 2023Q4

REPORT INFORMATION
  Report Type: Spontaneous
  Country: JP (occurrence: JP)
  Receive Date: 20231127
  Receipt Date: 20231220
  Transmission Date: 20240110
  Serious: Yes (Other)
  Sender: FDA-Public Use
  Company Number: JP-Korea IPSEN-2023-26308

PATIENT
  Sex: Male

DRUGS (1)
  1. LANREOTIDE ACETATE [Suspect]
     Active Substance: LANREOTIDE ACETATE
     Indication: Acromegaly
     Route: 058

REACTIONS (4)
  - Biliary dilatation [Unknown]
  - Pancreatic duct dilatation [Unknown]
  - Cholelithiasis [Unknown]
  - Cholelithiasis [Unknown]
